FAERS Safety Report 6617592-4 (Version None)
Quarter: 2010Q1

REPORT INFORMATION
  Report Type: 
  Country: None (occurrence: None)
  Receive Date: 20100308
  Receipt Date: 20100226
  Transmission Date: 20100710
  Serious: Yes (Other)
  Sender: FDA-Public Use
  Company Number: US-NAPPMUNDI-USA-2010-0042509

PATIENT
  Sex: Female
  Weight: 63.492 kg

DRUGS (4)
  1. OXYCONTIN [Suspect]
     Indication: DRUG USE FOR UNKNOWN INDICATION
     Dosage: 40 MG, TID
     Dates: end: 20090101
  2. PERCOCET [Suspect]
     Indication: ARTHRITIS
     Dosage: 10 MG, DAILY
     Dates: end: 20090101
  3. LYRICA [Suspect]
     Indication: FIBROMYALGIA
     Dosage: 75 MG, TID
     Route: 048
     Dates: end: 20090101
  4. VIOXX [Concomitant]
     Dosage: UNK MG, UNK
     Route: 048

REACTIONS (4)
  - ANGIOPATHY [None]
  - CARDIAC DISORDER [None]
  - FALL [None]
  - UPPER LIMB FRACTURE [None]
